FAERS Safety Report 24721537 (Version 1)
Quarter: 2024Q4

REPORT INFORMATION
  Report Type: Spontaneous
  Country: US (occurrence: None)
  Receive Date: 20241210
  Receipt Date: 20241210
  Transmission Date: 20250115
  Serious: Yes (Hospitalization, Disabling, Other)
  Sender: Public
  Company Number: None

PATIENT
  Age: 41 Year
  Sex: Female
  Weight: 60.75 kg

DRUGS (4)
  1. PREDNISONE [Suspect]
     Active Substance: PREDNISONE
     Indication: Paranasal sinus inflammation
     Dosage: OTHER QUANTITY : 57 TABLET(S);?OTHER FREQUENCY : TAPERED DOSE;?
     Route: 048
     Dates: start: 20240106, end: 20240120
  2. Vit D + K2 [Concomitant]
  3. MAGNESIUM [Concomitant]
     Active Substance: MAGNESIUM
  4. IRON [Concomitant]
     Active Substance: IRON

REACTIONS (6)
  - Dissociation [None]
  - Crying [None]
  - Intrusive thoughts [None]
  - Arthralgia [None]
  - Arthralgia [None]
  - Osteonecrosis [None]

NARRATIVE: CASE EVENT DATE: 20240120
